FAERS Safety Report 17593298 (Version 1)
Quarter: 2020Q1

REPORT INFORMATION
  Report Type: Spontaneous
  Country: CN (occurrence: CN)
  Receive Date: 20200327
  Receipt Date: 20200327
  Transmission Date: 20200409
  Serious: Yes (Hospitalization)
  Sender: FDA-Public Use
  Company Number: CN-JNJFOC-20200324554

PATIENT
  Age: 1 Year
  Sex: Female

DRUGS (2)
  1. TOPAMAX [Suspect]
     Active Substance: TOPIRAMATE
     Indication: EPILEPSY
     Dosage: 6.25 MG QN (AT NIGHT)
     Route: 065
     Dates: start: 20191209
  2. TOPAMAX [Suspect]
     Active Substance: TOPIRAMATE
     Route: 065
     Dates: end: 20200311

REACTIONS (5)
  - Hyponatraemic syndrome [Recovered/Resolved]
  - Off label use [Unknown]
  - Nephrocalcinosis [Unknown]
  - Hypercalcaemia [Recovered/Resolved]
  - Product use issue [Unknown]

NARRATIVE: CASE EVENT DATE: 20191209
